FAERS Safety Report 13267652 (Version 1)
Quarter: 2017Q1

REPORT INFORMATION
  Report Type: Spontaneous
  Country: US (occurrence: US)
  Receive Date: 20170224
  Receipt Date: 20170224
  Transmission Date: 20170428
  Serious: No
  Sender: FDA-Public Use
  Company Number: US-PFIZER INC-2017079083

PATIENT
  Age: 9 Year
  Sex: Male
  Weight: 34.93 kg

DRUGS (2)
  1. QUILLIVANT XR [Suspect]
     Active Substance: METHYLPHENIDATE HYDROCHLORIDE
     Indication: ATTENTION DEFICIT/HYPERACTIVITY DISORDER
     Dosage: 10 OR 11 ML A DAY
     Route: 048
  2. RISPERIDONE. [Concomitant]
     Active Substance: RISPERIDONE
     Indication: ATTENTION DEFICIT/HYPERACTIVITY DISORDER
     Dosage: 0.5 ML, 2X/DAY
     Route: 048

REACTIONS (10)
  - Insomnia [Unknown]
  - Disturbance in attention [Unknown]
  - Malaise [Unknown]
  - Psychomotor hyperactivity [Unknown]
  - Retching [Unknown]
  - Decreased appetite [Unknown]
  - Blood pressure decreased [Unknown]
  - Drug effect decreased [Unknown]
  - Nausea [Unknown]
  - Drug prescribing error [Unknown]
